FAERS Safety Report 7075371-0 (Version None)
Quarter: 2010Q4

REPORT INFORMATION
  Report Type: 
  Country: None (occurrence: None)
  Receive Date: 20101030
  Receipt Date: 20100921
  Transmission Date: 20110411
  Serious: No
  Sender: FDA-Public Use
  Company Number: US-WYE-H17117710

PATIENT
  Age: 68 Year
  Sex: Male
  Weight: 68.1 kg

DRUGS (6)
  1. ADVIL PM [Suspect]
     Indication: BACK PAIN
     Dosage: 1-2 CAPLES
     Route: 048
     Dates: start: 20100101, end: 20100822
  2. COENZYME Q10 [Concomitant]
  3. CRESTOR [Concomitant]
  4. CALCIUM [Concomitant]
  5. HYDROCHLOROTHIAZIDE [Concomitant]
  6. VITAMIN B-12 [Concomitant]

REACTIONS (2)
  - ABNORMAL DREAMS [None]
  - DRUG INEFFECTIVE [None]
